FAERS Safety Report 7427991-9 (Version None)
Quarter: 2011Q2

REPORT INFORMATION
  Report Type: 
  Country: None (occurrence: None)
  Receive Date: 20110413
  Receipt Date: 20110407
  Transmission Date: 20111010
  Serious: Yes (Life-Threatening, Hospitalization, Other)
  Sender: FDA-Public Use
  Company Number: 2011SP001626

PATIENT
  Age: 37 Year
  Sex: Male

DRUGS (11)
  1. PEG-INTRON [Suspect]
     Indication: HEPATITIS C
     Dosage: 120 MCG; QW; PO
     Route: 048
     Dates: start: 20100211, end: 20110106
  2. ZOLPIDEM TARTRATE [Concomitant]
  3. BOCEPREVIR [Suspect]
     Indication: HEPATITIS C
     Dosage: 800 MG; TID; PO
     Route: 048
     Dates: start: 20100301, end: 20110107
  4. SIPRALEXA /01588501/ [Concomitant]
  5. INVIRASE /01288701/ [Concomitant]
  6. REYATAZ [Concomitant]
  7. NORVIR [Concomitant]
  8. RIBAVIRIN [Suspect]
     Indication: HEPATITIS C
     Dosage: 600 MG; BID; PO
     Route: 048
     Dates: start: 20100211, end: 20110107
  9. EPIVIR [Concomitant]
  10. IMODIUM [Concomitant]
  11. XANAX [Concomitant]

REACTIONS (5)
  - DEEP VEIN THROMBOSIS [None]
  - DEPRESSION [None]
  - PULMONARY EMBOLISM [None]
  - SUICIDE ATTEMPT [None]
  - ANXIETY [None]
